FAERS Safety Report 10960382 (Version 1)
Quarter: 2015Q1

REPORT INFORMATION
  Report Type: Spontaneous
  Country: US (occurrence: US)
  Receive Date: 20150327
  Receipt Date: 20150327
  Transmission Date: 20150721
  Serious: Yes (Other)
  Sender: FDA-Public Use
  Company Number: US-SA-2015SA036164

PATIENT
  Age: 69 Year

DRUGS (2)
  1. FLUDARA [Suspect]
     Active Substance: FLUDARABINE PHOSPHATE
     Indication: CHRONIC LYMPHOCYTIC LEUKAEMIA
     Dosage: DAY 1,2,3 Q28
     Route: 042
     Dates: start: 20131210, end: 20140211
  2. RITUXIMAB [Suspect]
     Active Substance: RITUXIMAB
     Indication: CHRONIC LYMPHOCYTIC LEUKAEMIA
     Dosage: STRENGTH: 25 MG?DAYS 3-4 Q28
     Route: 042
     Dates: start: 20131210, end: 20140211

REACTIONS (4)
  - Chronic lymphocytic leukaemia [Unknown]
  - Atrial fibrillation [Unknown]
  - Therapeutic embolisation [Unknown]
  - Sinusitis [Unknown]

NARRATIVE: CASE EVENT DATE: 20140207
